FAERS Safety Report 8792711 (Version 2)
Quarter: 2012Q4

REPORT INFORMATION
  Report Type: Report from Study
  Country: US (occurrence: US)
  Receive Date: 20120918
  Receipt Date: 20121018
  Transmission Date: 20130627
  Serious: Yes (Hospitalization)
  Sender: FDA-Public Use
  Company Number: US-GLAXOSMITHKLINE-A0993155A

PATIENT
  Age: 55 Year
  Sex: Female
  Weight: 61.7 kg

DRUGS (3)
  1. LAPATINIB [Suspect]
     Indication: NEOPLASM
     Dosage: 1500MG Per day
     Route: 048
     Dates: start: 20120222
  2. GEMCITABINE [Suspect]
     Indication: NEOPLASM
     Dosage: 1000MGM2 Cyclic
     Dates: start: 20120222
  3. LIDOCAINE [Concomitant]
     Route: 050

REACTIONS (2)
  - Neck pain [Recovered/Resolved]
  - Dyspnoea [Recovered/Resolved]
